FAERS Safety Report 22233019 (Version 1)
Quarter: 2023Q2

REPORT INFORMATION
  Report Type: Spontaneous
  Country: US (occurrence: None)
  Receive Date: 20230420
  Receipt Date: 20230420
  Transmission Date: 20230721
  Serious: No
  Sender: FDA-Public Use
  Company Number: US-ROCHE-3043739

PATIENT
  Sex: Female

DRUGS (3)
  1. ESBRIET [Suspect]
     Active Substance: PIRFENIDONE
     Indication: Pulmonary arterial hypertension
     Route: 048
     Dates: start: 202202
  2. ESBRIET [Suspect]
     Active Substance: PIRFENIDONE
     Indication: Idiopathic pulmonary fibrosis
     Route: 048
     Dates: start: 20220309
  3. TYVASO [Concomitant]
     Active Substance: TREPROSTINIL
     Dosage: 5 BREATHS

REACTIONS (6)
  - Cough [Unknown]
  - Fatigue [Recovering/Resolving]
  - Dry mouth [Unknown]
  - Oropharyngeal pain [Unknown]
  - Off label use [Unknown]
  - Headache [Unknown]
